FAERS Safety Report 17240349 (Version 13)
Quarter: 2024Q1

REPORT INFORMATION
  Report Type: Other
  Country: DE (occurrence: DE)
  Receive Date: 20200107
  Receipt Date: 20240314
  Transmission Date: 20240410
  Serious: Yes (Hospitalization, Other)
  Sender: FDA-Public Use
  Company Number: DE-INDIVIOR LIMITED-INDV-121940-2018

PATIENT
  Age: 40 Year
  Sex: Female

DRUGS (25)
  1. OCREVUS [Suspect]
     Active Substance: OCRELIZUMAB
     Indication: Secondary progressive multiple sclerosis
     Route: 042
     Dates: start: 20180910, end: 201809
  2. OCREVUS [Suspect]
     Active Substance: OCRELIZUMAB
     Route: 042
     Dates: start: 20190508
  3. OCREVUS [Suspect]
     Active Substance: OCRELIZUMAB
     Route: 042
     Dates: start: 20180920, end: 20180920
  4. OCREVUS [Suspect]
     Active Substance: OCRELIZUMAB
     Route: 042
     Dates: start: 20181009, end: 201810
  5. OCREVUS [Suspect]
     Active Substance: OCRELIZUMAB
     Route: 042
     Dates: start: 20200526
  6. OCREVUS [Suspect]
     Active Substance: OCRELIZUMAB
     Route: 042
     Dates: start: 20201201
  7. OCREVUS [Suspect]
     Active Substance: OCRELIZUMAB
     Route: 042
  8. DALFAMPRIDINE [Suspect]
     Active Substance: DALFAMPRIDINE
     Indication: Product used for unknown indication
     Route: 065
     Dates: start: 20190617, end: 20190618
  9. DALFAMPRIDINE [Suspect]
     Active Substance: DALFAMPRIDINE
     Dosage: 2
     Route: 065
     Dates: start: 20190617
  10. COMIRNATY (TOZINAMERAN) [Suspect]
     Active Substance: TOZINAMERAN
     Indication: COVID-19
     Route: 065
     Dates: start: 20210514
  11. BUPRENORPHINE [Suspect]
     Active Substance: BUPRENORPHINE
     Indication: Trigeminal neuralgia
     Route: 065
     Dates: start: 20190805
  12. DIENOGEST\ESTRADIOL VALERATE [Concomitant]
     Active Substance: DIENOGEST\ESTRADIOL VALERATE
     Indication: Product used for unknown indication
     Route: 065
  13. CARBAMAZEPINE [Concomitant]
     Active Substance: CARBAMAZEPINE
     Indication: Product used for unknown indication
     Route: 065
  14. CARBAMAZEPINE [Concomitant]
     Active Substance: CARBAMAZEPINE
     Dosage: 100 MG, (0.33 UNITS IN A DAY)
     Route: 065
  15. CARBAMAZEPINE [Concomitant]
     Active Substance: CARBAMAZEPINE
     Dosage: 30 MG (HALF IN MORNING, HALF  IN AFTERNOON, ONE IN EVENING, ONE AT NIGHT)
     Route: 065
  16. CARBAMAZEPINE [Concomitant]
     Active Substance: CARBAMAZEPINE
     Dosage: 120 MILLIGRAM (HALF IN THE MORNING, HALF IN AFTERNOON ONE IN THE EVENING AND ONE IN THE NIGHT)
     Route: 065
  17. BACLOFEN [Concomitant]
     Active Substance: BACLOFEN
     Indication: Product used for unknown indication
     Dosage: (HALF IN THE MORNING, HALF IN AFTERNOON ONE IN THE EVENING AND ONE IN THE NIGHT)
     Route: 065
  18. BACLOFEN [Concomitant]
     Active Substance: BACLOFEN
     Dosage: 60 MILLIGRAM (ONE IN THE MORNING, ONE IN AFTERNOON TWO IN THE EVENING AND TWO IN THE NIGHT)
     Route: 065
  19. BACLOFEN [Concomitant]
     Active Substance: BACLOFEN
     Dosage: (ONE IN MORNING, ONE IN AFTERNOON, TWO IN EVENING, TWO AT NIGHT)
     Route: 065
  20. BACLOFEN [Concomitant]
     Active Substance: BACLOFEN
     Dosage: (HALF IN MORNING, HALF IN AFTERNOON, ONE IN EVENING, ONE AT NIGHT)
     Route: 065
  21. PREGABALIN [Concomitant]
     Active Substance: PREGABALIN
     Indication: Product used for unknown indication
     Route: 065
  22. CHOLECALCIFEROL [Concomitant]
     Active Substance: CHOLECALCIFEROL
     Indication: Product used for unknown indication
     Route: 065
  23. DRONABINOL [Concomitant]
     Active Substance: DRONABINOL
     Indication: Product used for unknown indication
     Dosage: 9-11 GTT (ONE IN ONE TIME), AS NECESSARY?DRONABINOL DROPS 12 DROPS (AT NIGHT)
     Route: 065
  24. GABAPENTIN [Concomitant]
     Active Substance: GABAPENTIN
     Indication: Product used for unknown indication
     Route: 065
  25. GABAPENTIN [Concomitant]
     Active Substance: GABAPENTIN

REACTIONS (29)
  - Dacryostenosis acquired [Not Recovered/Not Resolved]
  - Chills [Recovered/Resolved]
  - Multiple sclerosis [Not Recovered/Not Resolved]
  - Gait disturbance [Not Recovered/Not Resolved]
  - Dacryostenosis acquired [Not Recovered/Not Resolved]
  - Trigeminal neuralgia [Recovered/Resolved]
  - Fatigue [Recovered/Resolved]
  - Hypoacusis [Not Recovered/Not Resolved]
  - Asthenia [Recovered/Resolved]
  - Facial pain [Recovered/Resolved]
  - Fatigue [Unknown]
  - Muscle spasticity [Not Recovered/Not Resolved]
  - COVID-19 [Recovered/Resolved]
  - Pain [Unknown]
  - Fall [Unknown]
  - Cough [Recovered/Resolved]
  - Nausea [Recovered/Resolved]
  - Trigeminal neuralgia [Recovered/Resolved]
  - Hypoaesthesia [Not Recovered/Not Resolved]
  - Headache [Recovered/Resolved]
  - Off label use [Unknown]
  - Bone pain [Recovered/Resolved]
  - Herpes ophthalmic [Not Recovered/Not Resolved]
  - Retinal scar [Not Recovered/Not Resolved]
  - Vomiting [Recovered/Resolved]
  - Anosmia [Not Recovered/Not Resolved]
  - Aphonia [Recovered/Resolved]
  - Rib fracture [Recovered/Resolved]
  - Bone pain [Recovered/Resolved]

NARRATIVE: CASE EVENT DATE: 20180920
